FAERS Safety Report 16186281 (Version 3)
Quarter: 2019Q2

REPORT INFORMATION
  Report Type: Spontaneous
  Country: US (occurrence: US)
  Receive Date: 20190411
  Receipt Date: 20190429
  Transmission Date: 20190711
  Serious: No
  Sender: FDA-Public Use
  Company Number: US-CELGENEUS-USA-20190402820

PATIENT
  Age: 48 Year
  Sex: Female

DRUGS (2)
  1. OTEZLA [Suspect]
     Active Substance: APREMILAST
     Indication: PRODUCT USED FOR UNKNOWN INDICATION
     Dosage: STARTER PACK
     Route: 048
     Dates: start: 20190329
  2. OTEZLA [Suspect]
     Active Substance: APREMILAST
     Route: 048
     Dates: start: 20190409

REACTIONS (2)
  - Headache [Recovered/Resolved]
  - Seasonal allergy [Recovered/Resolved]

NARRATIVE: CASE EVENT DATE: 20190405
